FAERS Safety Report 7220036-5 (Version None)
Quarter: 2011Q1

REPORT INFORMATION
  Report Type: 
  Country: None (occurrence: None)
  Receive Date: 20110111
  Receipt Date: 20101222
  Transmission Date: 20110831
  Serious: Yes (Disabling, Congenital Anomaly)
  Sender: FDA-Public Use
  Company Number: A0681888A

PATIENT
  Sex: Male
  Weight: 3.4 kg

DRUGS (3)
  1. PAROXETINE [Suspect]
     Indication: SOCIAL PHOBIA
     Dosage: 40MG PER DAY
     Dates: start: 20040201, end: 20060801
  2. FOLIC ACID [Concomitant]
  3. AMBIEN [Concomitant]
     Indication: SLEEP DISORDER
     Dates: start: 20050901, end: 20060201

REACTIONS (8)
  - ENCEPHALOPATHY [None]
  - DRUG EXPOSURE DURING PREGNANCY [None]
  - HEMIPARESIS [None]
  - PORENCEPHALY [None]
  - DEMENTIA [None]
  - HEMIPLEGIA [None]
  - CEREBROVASCULAR ACCIDENT [None]
  - CONGENITAL ANOMALY [None]
